FAERS Safety Report 9210735 (Version 2)
Quarter: 2013Q2

REPORT INFORMATION
  Report Type: Spontaneous
  Country: FR (occurrence: FR)
  Receive Date: 20130404
  Receipt Date: 20130603
  Transmission Date: 20140414
  Serious: Yes (Hospitalization)
  Sender: FDA-Public Use
  Company Number: FR-GLAXOSMITHKLINE-B0664393A

PATIENT
  Age: 76 Year
  Sex: Female

DRUGS (10)
  1. RYTHMOL [Suspect]
     Indication: PRODUCT USED FOR UNKNOWN INDICATION
     Dosage: 150MG PER DAY
     Route: 048
     Dates: end: 20100608
  2. PIASCLEDINE [Suspect]
     Indication: PRODUCT USED FOR UNKNOWN INDICATION
     Route: 048
     Dates: start: 20100511, end: 20100608
  3. ZOCOR [Suspect]
     Indication: PRODUCT USED FOR UNKNOWN INDICATION
     Route: 048
     Dates: start: 20100513, end: 20100608
  4. RIVOTRIL [Concomitant]
     Dosage: 2MG PER DAY
     Route: 048
     Dates: end: 20100613
  5. OGAST [Concomitant]
  6. LEVOTHYROXINE [Concomitant]
     Dosage: 75MCG PER DAY
     Route: 048
  7. PROZAC [Concomitant]
     Dosage: 20G PER DAY
     Dates: end: 20100614
  8. WARFARIN SODIUM [Concomitant]
     Indication: PULMONARY EMBOLISM
     Dates: start: 200911
  9. LOVENOX [Concomitant]
     Dates: start: 20100609
  10. INEXIUM [Concomitant]
     Dosage: 20MG PER DAY
     Dates: start: 20100609, end: 20100613

REACTIONS (7)
  - Hepatocellular injury [Recovered/Resolved]
  - Cholestasis [Recovered/Resolved]
  - Jaundice [Recovered/Resolved]
  - Abdominal pain [Unknown]
  - Liver function test abnormal [Unknown]
  - Pancreatic cyst [Unknown]
  - Pancreatic neoplasm [Unknown]
